FAERS Safety Report 15984801 (Version 2)
Quarter: 2019Q3

REPORT INFORMATION
  Report Type: Spontaneous
  Country: US (occurrence: US)
  Receive Date: 20190220
  Receipt Date: 20190704
  Transmission Date: 20191004
  Serious: Yes (Hospitalization, Other)
  Sender: FDA-Public Use
  Company Number: US-TAKEDA-2019TUS006966

PATIENT
  Age: 38 Year
  Sex: Male
  Weight: 94.33 kg

DRUGS (1)
  1. ENTYVIO [Suspect]
     Active Substance: VEDOLIZUMAB
     Indication: COLITIS ULCERATIVE
     Dosage: 300 MILLIGRAM
     Route: 042
     Dates: start: 20180310

REACTIONS (4)
  - Humerus fracture [Unknown]
  - Rash [Recovering/Resolving]
  - Road traffic accident [Recovering/Resolving]
  - Wound infection [Recovered/Resolved]

NARRATIVE: CASE EVENT DATE: 20181022
